FAERS Safety Report 14092436 (Version 4)
Quarter: 2018Q4

REPORT INFORMATION
  Report Type: Report from Study
  Country: US (occurrence: US)
  Receive Date: 20171016
  Receipt Date: 20181119
  Transmission Date: 20190204
  Serious: Yes (Hospitalization)
  Sender: FDA-Public Use
  Company Number: US-ROCHE-2007372

PATIENT
  Age: 44 Year
  Sex: Female
  Weight: 61.5 kg

DRUGS (8)
  1. OXYCODONE [Concomitant]
     Active Substance: OXYCODONE
     Indication: TUMOUR PAIN
     Dosage: 5MG/5ML
     Route: 065
     Dates: start: 20170830
  2. ATEZOLIZUMAB. [Suspect]
     Active Substance: ATEZOLIZUMAB
     Indication: METASTATIC NEOPLASM
     Dosage: -INITIAL DOSING PER PROTOCOL.?-MOST RECENT DOSE (1200 MG) ADMINISTERED PRIOR TO AE ONSET (AT 13.44):
     Route: 042
     Dates: start: 20170809
  3. FLONASE [Concomitant]
     Active Substance: FLUTICASONE PROPIONATE
     Indication: EAR PAIN
     Route: 065
     Dates: start: 20170802
  4. FENTANYL. [Concomitant]
     Active Substance: FENTANYL
     Indication: TUMOUR PAIN
     Route: 065
     Dates: start: 20170905
  5. IBUPROFEN. [Concomitant]
     Active Substance: IBUPROFEN
     Indication: HEADACHE
     Route: 065
     Dates: start: 20170801
  6. OBINUTUZUMAB. [Suspect]
     Active Substance: OBINUTUZUMAB
     Indication: METASTATIC NEOPLASM
     Dosage: ADMINISTERED AS PRE-TREATMENT ON 2 CONSECUTIVE DAYS (DAY -13 AND DAY -12) PRIOR TO TREATMENT START W
     Route: 042
     Dates: start: 20170726
  7. PREVIDENT 5000 BOOSTER PLUS [Concomitant]
     Dosage: DENTAL HEALTH MAINTENANCE.
     Route: 065
     Dates: start: 20170222
  8. TRANSDERM SCOP [Concomitant]
     Active Substance: SCOPOLAMINE
     Route: 065
     Dates: start: 20170905, end: 20170908

REACTIONS (1)
  - Mental status changes [Recovered/Resolved]

NARRATIVE: CASE EVENT DATE: 20171008
